FAERS Safety Report 23713759 (Version 1)
Quarter: 2024Q2

REPORT INFORMATION
  Report Type: Spontaneous
  Country: US (occurrence: US)
  Receive Date: 20240405
  Receipt Date: 20240405
  Transmission Date: 20240715
  Serious: No
  Sender: FDA-Public Use
  Company Number: US-MYLANLABS-2024M1026530

PATIENT
  Sex: Female
  Weight: 70.31 kg

DRUGS (1)
  1. ESTRADIOL TRANSDERMAL SYSTEM [Suspect]
     Active Substance: ESTRADIOL
     Indication: Hysterectomy
     Dosage: 0.025 MILLIGRAM, QD (ONCE WEEKLY)
     Route: 062

REACTIONS (1)
  - Wrong technique in product usage process [Not Recovered/Not Resolved]
